FAERS Safety Report 8895967 (Version 3)
Quarter: 2012Q4

REPORT INFORMATION
  Report Type: 
  Country: US (occurrence: US)
  Receive Date: 20121108
  Receipt Date: 20121206
  Transmission Date: 20130627
  Serious: Yes (Other)
  Sender: FDA-Public Use
  Company Number: US-PFIZER INC-2012277565

PATIENT
  Sex: Female
  Weight: 2.47 kg

DRUGS (3)
  1. DILTIAZEM HCL [Suspect]
     Indication: ATRIAL FLUTTER
     Dosage: UNK
     Route: 064
  2. AMIODARONE HCL [Suspect]
     Indication: ATRIAL FLUTTER
     Dosage: UNK
     Route: 064
  3. FLECAINIDE ACETATE [Suspect]
     Indication: ATRIAL FLUTTER
     Dosage: UNK
     Route: 064

REACTIONS (3)
  - Maternal exposure timing unspecified [Unknown]
  - Foetal growth restriction [Unknown]
  - Maternal drugs affecting foetus [None]
